FAERS Safety Report 7751203-X (Version None)
Quarter: 2011Q3

REPORT INFORMATION
  Report Type: 
  Country: None (occurrence: None)
  Receive Date: 20110914
  Receipt Date: 20071008
  Transmission Date: 20111222
  Serious: Yes (Death)
  Sender: FDA-Public Use
  Company Number: PHHY2007NL03764

PATIENT
  Sex: Male

DRUGS (2)
  1. SANDOSTATIN LAR [Suspect]
     Indication: ACROMEGALY
     Dosage: 600 MG, ONCE PER THRE WEEKS
     Dates: start: 20051212
  2. SANDOSTATIN LAR [Suspect]
     Dosage: 600 MG, ONCE PER THRE WEEKS
     Route: 065
     Dates: start: 20071001, end: 20071001

REACTIONS (1)
  - DEATH [None]
